FAERS Safety Report 11553089 (Version 3)
Quarter: 2015Q4

REPORT INFORMATION
  Report Type: Report from Study
  Country: FR (occurrence: FR)
  Receive Date: 20150925
  Receipt Date: 20151002
  Transmission Date: 20160304
  Serious: Yes (Other)
  Sender: FDA-Public Use
  Company Number: FR-ASTELLAS-2015US034288

PATIENT
  Age: 3 Year
  Sex: Male
  Weight: 15 kg

DRUGS (1)
  1. MICAFUNGIN [Suspect]
     Active Substance: MICAFUNGIN
     Indication: ANTIFUNGAL PROPHYLAXIS
     Route: 065
     Dates: start: 20141026, end: 20141117

REACTIONS (3)
  - Drug ineffective [Unknown]
  - Mucosal inflammation [Recovered/Resolved]
  - Pseudomonal sepsis [Recovered/Resolved]

NARRATIVE: CASE EVENT DATE: 20141117
